FAERS Safety Report 13190916 (Version 1)
Quarter: 2017Q1

REPORT INFORMATION
  Report Type: Other
  Country: JP (occurrence: JP)
  Receive Date: 20170206
  Receipt Date: 20170206
  Transmission Date: 20170428
  Serious: Yes (Disabling)
  Sender: FDA-Public Use
  Company Number: JP-ALSI-201700037

PATIENT
  Age: 70 Year
  Sex: Male
  Weight: 84 kg

DRUGS (5)
  1. INSULIN [Concomitant]
     Active Substance: INSULIN NOS
  2. MECOBALAMIN [Concomitant]
     Active Substance: METHYLCOBALAMIN
  3. OXYGEN. [Suspect]
     Active Substance: OXYGEN
     Indication: SUDDEN HEARING LOSS
  4. ADENOSINE. [Concomitant]
     Active Substance: ADENOSINE
  5. PREDNISOLONE. [Suspect]
     Active Substance: PREDNISOLONE

REACTIONS (3)
  - Tinnitus [Unknown]
  - Hypoacusis [Unknown]
  - Off label use [Unknown]
